FAERS Safety Report 21702753 (Version 1)
Quarter: 2022Q4

REPORT INFORMATION
  Report Type: Report from Study
  Country: US (occurrence: US)
  Receive Date: 20221209
  Receipt Date: 20221209
  Transmission Date: 20230113
  Serious: No
  Sender: FDA-Public Use
  Company Number: US-ABBVIE-4184757

PATIENT
  Age: 45 Year
  Sex: Male

DRUGS (1)
  1. HUMIRA [Suspect]
     Active Substance: ADALIMUMAB
     Indication: Crohn^s disease
     Dosage: CITRATE FREE/EVENT ONSET FOR LOCALIZED RASH, FISTULA AND RECTAL ABSCESS SHOULD BE 2022 ATLEAST.
     Route: 058
     Dates: start: 20220413

REACTIONS (4)
  - COVID-19 [Recovered/Resolved]
  - Fistula [Unknown]
  - Rash [Not Recovered/Not Resolved]
  - Rectal abscess [Unknown]

NARRATIVE: CASE EVENT DATE: 20221001
